FAERS Safety Report 11926944 (Version 1)
Quarter: 2016Q1

REPORT INFORMATION
  Report Type: Spontaneous
  Country: BR (occurrence: BR)
  Receive Date: 20160119
  Receipt Date: 20160119
  Transmission Date: 20160526
  Serious: Yes (Other)
  Sender: FDA-Public Use
  Company Number: BR-PFIZER INC-2016003031

PATIENT
  Age: 45 Year
  Sex: Female
  Weight: 54 kg

DRUGS (5)
  1. DEXAMETHASONE. [Concomitant]
     Active Substance: DEXAMETHASONE
     Dosage: 12 MG, EVERY 21 DAYS
     Route: 042
  2. ADRIBLASTINA [Suspect]
     Active Substance: DOXORUBICIN HYDROCHLORIDE
     Indication: BREAST CANCER
     Dosage: 94.68 MG, CYCLIC (EVERY 21 DAYS)
     Route: 042
     Dates: start: 20151222
  3. KYTRIL [Concomitant]
     Active Substance: GRANISETRON HYDROCHLORIDE
     Dosage: UNK
  4. GENUXAL [Concomitant]
     Active Substance: CYCLOPHOSPHAMIDE
     Dosage: UNK
  5. EMEND [Concomitant]
     Active Substance: APREPITANT
     Dosage: UNK

REACTIONS (1)
  - Vascular pain [Recovered/Resolved]

NARRATIVE: CASE EVENT DATE: 20151222
